FAERS Safety Report 22843728 (Version 2)
Quarter: 2024Q1

REPORT INFORMATION
  Report Type: Report from Study
  Country: US (occurrence: US)
  Receive Date: 20230821
  Receipt Date: 20240314
  Transmission Date: 20240410
  Serious: Yes (Hospitalization)
  Sender: FDA-Public Use
  Company Number: US-ARGENX-2023-ARGX-US002414

PATIENT

DRUGS (3)
  1. VYVGART [Suspect]
     Active Substance: EFGARTIGIMOD ALFA-FCAB
     Indication: Myasthenia gravis
     Dosage: UNK
     Route: 042
     Dates: start: 20220921, end: 20230530
  2. VYVGART [Suspect]
     Active Substance: EFGARTIGIMOD ALFA-FCAB
     Dosage: UNK
     Route: 042
  3. VYVGART [Suspect]
     Active Substance: EFGARTIGIMOD ALFA-FCAB
     Dosage: 1100 MG, 1/WEEK, 400MG/20ML
     Route: 042

REACTIONS (7)
  - Chills [Unknown]
  - Blood pressure decreased [Unknown]
  - Decreased appetite [Unknown]
  - Asthenia [Unknown]
  - Myasthenia gravis [Unknown]
  - Dyspnoea [Unknown]
  - Tongue disorder [Unknown]
